FAERS Safety Report 4454651-9 (Version None)
Quarter: 2004Q3

REPORT INFORMATION
  Report Type: 
  Country: None (occurrence: None)
  Receive Date: 20040826
  Receipt Date: 20030703
  Transmission Date: 20050211
  Serious: Yes (Other)
  Sender: FDA-Public Use
  Company Number: 226787

PATIENT
  Age: 38 Year
  Sex: Female
  Weight: 79.4 kg

DRUGS (1)
  1. NOVOLIN N RELI ON (INSULIN HUMAN, BIOSYNTHETIC) SUSPENSION FOR INJECTI [Suspect]
     Indication: DIABETES MELLITUS
     Dosage: 44 IU, QD, SUBCUTANEOUS
     Route: 058
     Dates: start: 19930101, end: 20030401

REACTIONS (1)
  - BLOOD GLUCOSE FLUCTUATION [None]
